FAERS Safety Report 16454905 (Version 1)
Quarter: 2019Q2

REPORT INFORMATION
  Report Type: Spontaneous
  Country: AU (occurrence: AU)
  Receive Date: 20190619
  Receipt Date: 20190619
  Transmission Date: 20190711
  Serious: Yes (Other)
  Sender: FDA-Public Use
  Company Number: PHHY2019AU137856

PATIENT
  Age: 10 Day
  Sex: Male
  Weight: 3.5 kg

DRUGS (2)
  1. PARACETAMOL [Suspect]
     Active Substance: ACETAMINOPHEN
     Indication: PRODUCT USED FOR UNKNOWN INDICATION
     Dosage: 224 MG/KG, QD
     Route: 065
  2. PARACETAMOL [Suspect]
     Active Substance: ACETAMINOPHEN
     Dosage: 40 MG, UNK
     Route: 065

REACTIONS (3)
  - Accidental overdose [Recovering/Resolving]
  - Medication error [Recovering/Resolving]
  - Analgesic drug level increased [Recovering/Resolving]
